FAERS Safety Report 8908026 (Version 1)
Quarter: 2012Q4

REPORT INFORMATION
  Report Type: 
  Country: US (occurrence: US)
  Receive Date: 20121114
  Receipt Date: 20121114
  Transmission Date: 20130627
  Serious: Yes (Other)
  Sender: FDA-Public Use
  Company Number: CHPA2012US023119

PATIENT
  Age: 54 Year
  Sex: Female

DRUGS (2)
  1. EXCEDRIN ES BACK + BODY [Suspect]
     Indication: MUSCULOSKELETAL PAIN
     Dosage: 3 DF, QD
     Route: 048
     Dates: start: 2011, end: 201207
  2. EXCEDRIN TENSION HEADACHE [Suspect]
     Indication: MUSCULOSKELETAL PAIN
     Dosage: 3 DF, QD
     Route: 048
     Dates: start: 2011, end: 201207

REACTIONS (5)
  - Myocardial infarction [Recovered/Resolved]
  - Dyspnoea [Recovered/Resolved]
  - Chest discomfort [Recovered/Resolved]
  - Incorrect drug administration duration [Unknown]
  - Incorrect dose administered [Unknown]
